FAERS Safety Report 6028368-3 (Version None)
Quarter: 2009Q1

REPORT INFORMATION
  Report Type: 
  Country: None (occurrence: None)
  Receive Date: 20090106
  Receipt Date: 20081229
  Transmission Date: 20090719
  Serious: Yes (Hospitalization, Other)
  Sender: FDA-Public Use
  Company Number: PHHY2008GB30571

PATIENT
  Sex: Male

DRUGS (5)
  1. CLOZARIL [Suspect]
     Indication: SCHIZOPHRENIA
     Dosage: UNK
     Dates: start: 20020501, end: 20030401
  2. CLOZARIL [Suspect]
     Dosage: UNK
     Dates: start: 20040828, end: 20081128
  3. CLOZARIL [Suspect]
     Dosage: 300 MG, QD
     Route: 048
     Dates: start: 20020501, end: 20081204
  4. PRIADEL [Concomitant]
     Indication: BIPOLAR DISORDER
     Dosage: 400 MG, QD
     Route: 048
     Dates: start: 19931119
  5. VENLAFAXINE XL [Concomitant]
     Indication: DEPRESSION
     Dosage: 150 MG, QD
     Route: 048
     Dates: start: 20060124

REACTIONS (12)
  - ANXIETY [None]
  - ASTHENIA [None]
  - CANDIDIASIS [None]
  - DISORIENTATION [None]
  - EATING DISORDER [None]
  - FEELING COLD [None]
  - MALAISE [None]
  - MENTAL DISORDER [None]
  - NEUTROPENIA [None]
  - VOMITING [None]
  - WHITE BLOOD CELL COUNT DECREASED [None]
  - WITHDRAWAL SYNDROME [None]
